FAERS Safety Report 5897310-8 (Version None)
Quarter: 2008Q3

REPORT INFORMATION
  Report Type: 
  Country: None (occurrence: None)
  Receive Date: 20080925
  Receipt Date: 20080915
  Transmission Date: 20090109
  Serious: Yes (Other)
  Sender: FDA-Public Use
  Company Number: AU-JNJFOC-20080707065

PATIENT
  Sex: Female
  Weight: 55 kg

DRUGS (4)
  1. REMICADE [Suspect]
     Dosage: A TOTAL OF 4 INFUSIONS WERE ADMINISTERED
     Route: 042
  2. REMICADE [Suspect]
     Indication: ANKYLOSING SPONDYLITIS
     Dosage: 12 WEEKS
     Route: 042
  3. METHOTREXATE [Concomitant]
  4. CELEBREX [Concomitant]

REACTIONS (2)
  - PERITONEAL TUBERCULOSIS [None]
  - RETINITIS [None]
